FAERS Safety Report 6610250-1 (Version None)
Quarter: 2010Q1

REPORT INFORMATION
  Report Type: 
  Country: None (occurrence: None)
  Receive Date: 20100302
  Receipt Date: 20100222
  Transmission Date: 20100710
  Serious: Yes (Hospitalization)
  Sender: FDA-Public Use
  Company Number: JP-MERCK-1002USA04020

PATIENT
  Age: 77 Year
  Sex: Female

DRUGS (11)
  1. JANUVIA [Suspect]
     Indication: TYPE 2 DIABETES MELLITUS
     Route: 048
     Dates: start: 20100202
  2. AMARYL [Concomitant]
     Route: 065
  3. BASEN OD [Concomitant]
     Route: 048
  4. KINEDAK [Concomitant]
     Route: 065
  5. HYDROCHLOROTHIAZIDE AND TELMISARTAN [Concomitant]
     Route: 048
  6. SOLANAX [Concomitant]
     Route: 048
  7. EPADEL [Concomitant]
     Route: 065
  8. GASTER D [Concomitant]
     Route: 048
  9. METHYCOBAL [Concomitant]
     Route: 065
  10. LENDORMIN [Concomitant]
     Route: 065
  11. FEMARA [Concomitant]
     Route: 065

REACTIONS (1)
  - HYPOGLYCAEMIA [None]
